FAERS Safety Report 8338455-2 (Version None)
Quarter: 2012Q2

REPORT INFORMATION
  Report Type: 
  Country: None (occurrence: None)
  Receive Date: 20120504
  Receipt Date: 20120424
  Transmission Date: 20120825
  Serious: Yes (Other)
  Sender: FDA-Public Use
  Company Number: CA-ROCHE-1064772

PATIENT
  Sex: Female

DRUGS (5)
  1. ALVESCO [Concomitant]
  2. XOLAIR [Suspect]
     Indication: ASTHMA
     Route: 058
     Dates: start: 20120327
  3. ALBUTEROL [Concomitant]
  4. SINGULAIR [Concomitant]
  5. ADVAIR DISKUS 100/50 [Concomitant]

REACTIONS (1)
  - BLOOD PRESSURE INCREASED [None]
